FAERS Safety Report 9960770 (Version 1)
Quarter: 2014Q1

REPORT INFORMATION
  Report Type: Report from Study
  Country: US (occurrence: US)
  Receive Date: 20140305
  Receipt Date: 20140305
  Transmission Date: 20141002
  Serious: No
  Sender: FDA-Public Use
  Company Number: US-ABBVIE-13P-163-1109471-00

PATIENT
  Age: 64 Year
  Sex: Female

DRUGS (14)
  1. HUMIRA [Suspect]
     Indication: RHEUMATOID ARTHRITIS
     Route: 058
     Dates: start: 201301, end: 201305
  2. HUMIRA [Suspect]
     Route: 058
     Dates: start: 20130522, end: 20130612
  3. HUMIRA [Suspect]
     Route: 058
     Dates: start: 201306
  4. AMITRIPTYLINE [Concomitant]
     Indication: COLITIS
  5. KLOR-CON [Concomitant]
     Indication: MINERAL SUPPLEMENTATION
     Dosage: 20-2MG; ONE PER DAY
  6. OMEPRAZOLE [Concomitant]
     Indication: GASTRIC DISORDER
     Dosage: 2 PER DAY
  7. METAROL [Concomitant]
     Indication: RHEUMATOID ARTHRITIS
     Dosage: 2 PER DAY
  8. TRANXENE [Concomitant]
     Indication: INSOMNIA
  9. HYOSCYAMINE SULFATE [Concomitant]
     Indication: ABDOMINAL PAIN UPPER
     Dosage: 4 PER DAY
  10. LIDODERM [Concomitant]
     Indication: ABDOMINAL PAIN UPPER
     Dosage: 75MG 12 HOURS ON 12 HOURS OFF
  11. SUCRALFATE [Concomitant]
     Indication: GASTRIC DISORDER
     Dosage: 1 PER DAY
  12. DYAZIDE MAXIDE [Concomitant]
     Indication: BLOOD PRESSURE
     Dosage: 75.5/25MG
  13. DYAZIDE MAXIDE [Concomitant]
     Indication: DIURETIC THERAPY
  14. MULTIVITAMIN [Concomitant]
     Indication: PRODUCT USED FOR UNKNOWN INDICATION
     Dosage: 1 PER DAY

REACTIONS (2)
  - Drug ineffective [Recovering/Resolving]
  - Arthritis [Recovering/Resolving]
